FAERS Safety Report 5266616-8 (Version None)
Quarter: 2007Q1

REPORT INFORMATION
  Report Type: 
  Country: None (occurrence: None)
  Receive Date: 20070315
  Receipt Date: 20070307
  Transmission Date: 20070707
  Serious: Yes (Other)
  Sender: FDA-Public Use
  Company Number: US-PFIZER INC-2007018377

PATIENT
  Sex: Male
  Weight: 136.1 kg

DRUGS (12)
  1. CHANTIX [Suspect]
     Indication: EX-SMOKER
     Dates: start: 20070221, end: 20070225
  2. VYTORIN [Concomitant]
     Indication: BLOOD CHOLESTEROL INCREASED
  3. LISINOPRIL [Concomitant]
     Indication: HYPERTENSION
  4. FISH OIL [Concomitant]
  5. GARLIC [Concomitant]
  6. ALL OTHER THERAPEUTIC PRODUCTS [Concomitant]
  7. NIACIN [Concomitant]
  8. ACETYLSALICYLIC ACID SRT [Concomitant]
  9. PLAVIX [Concomitant]
  10. COENZYME Q10 [Concomitant]
  11. LEXAPRO [Concomitant]
     Indication: ANXIETY
     Dates: start: 20070101
  12. LEXAPRO [Concomitant]
     Indication: DEPRESSION

REACTIONS (2)
  - ANGINA PECTORIS [None]
  - MUSCULAR WEAKNESS [None]
